FAERS Safety Report 7449631-5 (Version None)
Quarter: 2011Q2

REPORT INFORMATION
  Report Type: 
  Country: None (occurrence: None)
  Receive Date: 20110420
  Receipt Date: 20110407
  Transmission Date: 20111010
  Serious: Yes (Death, Hospitalization)
  Sender: FDA-Public Use
  Company Number: 2011MA003552

PATIENT
  Age: 52 Year
  Sex: Male

DRUGS (1)
  1. PACLITAXEL [Suspect]
     Indication: GASTRIC CANCER
     Dosage: 840 MG/M2

REACTIONS (12)
  - GASTRIC CANCER [None]
  - CONSTIPATION [None]
  - AMOEBIC COLITIS [None]
  - OEDEMA PERIPHERAL [None]
  - TRANSAMINASES INCREASED [None]
  - HYPOALBUMINAEMIA [None]
  - PERITONITIS [None]
  - NEOPLASM PROGRESSION [None]
  - INTESTINAL PERFORATION [None]
  - GASTROINTESTINAL HAEMORRHAGE [None]
  - ANAEMIA [None]
  - ABDOMINAL MASS [None]
